FAERS Safety Report 8837136 (Version 3)
Quarter: 2013Q1

REPORT INFORMATION
  Report Type: Report from Study
  Country: FR (occurrence: FR)
  Receive Date: 20121012
  Receipt Date: 20130226
  Transmission Date: 20140127
  Serious: Yes (Other)
  Sender: FDA-Public Use
  Company Number: PHHO2012FR014768

PATIENT
  Sex: 0

DRUGS (2)
  1. EVEROLIMUS [Suspect]
     Indication: ACOUSTIC NEUROMA
     Dosage: 10 MG/DAY
     Route: 048
     Dates: start: 20120228, end: 20120830
  2. EVEROLIMUS [Suspect]
     Dosage: 10 MG/DAY
     Route: 048
     Dates: start: 20120918

REACTIONS (1)
  - Basal cell carcinoma [Recovering/Resolving]
